FAERS Safety Report 4642295-5 (Version None)
Quarter: 2005Q2

REPORT INFORMATION
  Report Type: 
  Country: None (occurrence: None)
  Receive Date: 20050420
  Receipt Date: 20050406
  Transmission Date: 20051028
  Serious: Yes (Hospitalization, Other)
  Sender: FDA-Public Use
  Company Number: USA050494604

PATIENT
  Age: 43 Year
  Sex: Male

DRUGS (3)
  1. STRATTERA [Suspect]
     Dosage: 25 MG DAY
     Dates: start: 20041201
  2. PAXIL CR [Concomitant]
  3. WELLBUTRIN [Concomitant]

REACTIONS (6)
  - CEREBROVASCULAR DISORDER [None]
  - DRUG INEFFECTIVE [None]
  - HAEMORRHAGIC STROKE [None]
  - HEADACHE [None]
  - HEMIPLEGIA [None]
  - SPEECH DISORDER [None]
